FAERS Safety Report 6297921-4 (Version None)
Quarter: 2009Q3

REPORT INFORMATION
  Report Type: 
  Country: None (occurrence: None)
  Receive Date: 20090805
  Receipt Date: 20090729
  Transmission Date: 20100115
  Serious: Yes (Other)
  Sender: FDA-Public Use
  Company Number: A0797192A

PATIENT
  Sex: Female
  Weight: 84.1 kg

DRUGS (5)
  1. PAXIL [Suspect]
     Indication: DEPRESSION
     Dosage: 60MG PER DAY
     Route: 048
     Dates: start: 20071201, end: 20090728
  2. LITHIUM [Suspect]
     Indication: BIPOLAR DISORDER
     Route: 065
     Dates: start: 20080301, end: 20090715
  3. ORAL CONTRACEPTIVE [Concomitant]
  4. IMOVANE [Concomitant]
     Route: 065
  5. TRIPHASIL-21 [Concomitant]
     Indication: DRUG USE FOR UNKNOWN INDICATION
     Dosage: 1TAB PER DAY
     Route: 065
     Dates: start: 20070101, end: 20090715

REACTIONS (1)
  - BENIGN INTRACRANIAL HYPERTENSION [None]
